FAERS Safety Report 11130167 (Version 1)
Quarter: 2015Q2

REPORT INFORMATION
  Report Type: Spontaneous
  Country: AU (occurrence: AU)
  Receive Date: 20150521
  Receipt Date: 20150521
  Transmission Date: 20150821
  Serious: Yes (Hospitalization, Other)
  Sender: FDA-Public Use
  Company Number: AU-B.I. PHARMACEUTICALS,INC./RIDGEFIELD-2015-BI-05349AU

PATIENT
  Age: 61 Year
  Sex: Male
  Weight: 102 kg

DRUGS (4)
  1. MOBIC [Suspect]
     Active Substance: MELOXICAM
     Indication: INJURY
  2. MOBIC [Suspect]
     Active Substance: MELOXICAM
     Indication: BACK DISORDER
     Dosage: 15 MG
     Route: 065
     Dates: start: 20131223
  3. CRESTOR [Concomitant]
     Active Substance: ROSUVASTATIN CALCIUM
     Indication: PRODUCT USED FOR UNKNOWN INDICATION
     Dosage: DOSE PER APPLICATION: 10 (UNIT NOT REPORTED)
     Route: 065
     Dates: start: 2007
  4. ATACAND [Concomitant]
     Active Substance: CANDESARTAN CILEXETIL
     Indication: PRODUCT USED FOR UNKNOWN INDICATION
     Dosage: DOSE PER APPLICATION: 32 (UNIT NOT REPORTED)
     Route: 065
     Dates: start: 2007

REACTIONS (6)
  - Haemorrhage [Unknown]
  - Vomiting [Unknown]
  - Duodenal ulcer [Recovered/Resolved with Sequelae]
  - Tremor [Unknown]
  - Malaise [Not Recovered/Not Resolved]
  - Delirium [Unknown]

NARRATIVE: CASE EVENT DATE: 201401
